FAERS Safety Report 5300364-0 (Version None)
Quarter: 2007Q2

REPORT INFORMATION
  Report Type: 
  Country: None (occurrence: None)
  Receive Date: 20070413
  Receipt Date: 20070413
  Transmission Date: 20071010
  Serious: Yes (Hospitalization)
  Sender: FDA-Public Use
  Company Number: None

PATIENT
  Sex: Female
  Weight: 90.7194 kg

DRUGS (2)
  1. NUVARING [Suspect]
     Indication: CONTRACEPTION
     Dosage: 1 RING USED FOR 3 WEEKS   1X PER MONTH  VAG
     Route: 067
     Dates: start: 20070325, end: 20070406
  2. NUVARING [Suspect]
     Indication: MENSTRUATION IRREGULAR
     Dosage: 1 RING USED FOR 3 WEEKS   1X PER MONTH  VAG
     Route: 067
     Dates: start: 20070325, end: 20070406

REACTIONS (1)
  - THROMBOSIS [None]
